FAERS Safety Report 9383104 (Version 1)
Quarter: 2013Q3

REPORT INFORMATION
  Report Type: Spontaneous
  Country: US (occurrence: US)
  Receive Date: 20130704
  Receipt Date: 20130704
  Transmission Date: 20140515
  Serious: No
  Sender: FDA-Public Use
  Company Number: US-US-EMD SERONO, INC.-7221240

PATIENT
  Sex: Female

DRUGS (1)
  1. REBIF [Suspect]
     Indication: PRODUCT USED FOR UNKNOWN INDICATION
     Route: 058
     Dates: start: 201305

REACTIONS (4)
  - Poor quality sleep [Not Recovered/Not Resolved]
  - Influenza like illness [Unknown]
  - Fatigue [Recovering/Resolving]
  - Injection site reaction [Not Recovered/Not Resolved]
